FAERS Safety Report 16796480 (Version 2)
Quarter: 2019Q4

REPORT INFORMATION
  Report Type: Report from Study
  Country: US (occurrence: US)
  Receive Date: 20190911
  Receipt Date: 20191018
  Transmission Date: 20200122
  Serious: No
  Sender: FDA-Public Use
  Company Number: US-SA-2019SA253485

PATIENT
  Age: 76 Year
  Sex: Female

DRUGS (2)
  1. DUPILUMAB [Suspect]
     Active Substance: DUPILUMAB
     Indication: ASTHMA
     Dosage: 600 MG, 1X
     Route: 058
     Dates: start: 20190726, end: 20190726
  2. DUPILUMAB [Suspect]
     Active Substance: DUPILUMAB
     Dosage: 300 MG, QOW
     Route: 058

REACTIONS (8)
  - Abdominal discomfort [Recovering/Resolving]
  - Feeding disorder [Unknown]
  - Nausea [Recovering/Resolving]
  - Productive cough [Recovering/Resolving]
  - Pain in extremity [Recovering/Resolving]
  - Product dose omission [Unknown]
  - Malaise [Recovering/Resolving]
  - Fear of injection [Unknown]
